FAERS Safety Report 20525529 (Version 3)
Quarter: 2022Q2

REPORT INFORMATION
  Report Type: Report from Study
  Country: AR (occurrence: AR)
  Receive Date: 20220228
  Receipt Date: 20220411
  Transmission Date: 20220721
  Serious: Yes (Other)
  Sender: FDA-Public Use
  Company Number: AR-NOVARTISPH-NVSC2021AR260564

PATIENT
  Age: 65 Year
  Sex: Female

DRUGS (10)
  1. AFINITOR [Suspect]
     Active Substance: EVEROLIMUS
     Indication: Breast cancer metastatic
     Dosage: 10 MG, QD
     Route: 048
     Dates: start: 20210910
  2. AFINITOR [Suspect]
     Active Substance: EVEROLIMUS
     Dosage: 5 MG, QD
     Route: 048
     Dates: start: 20210910
  3. AFINITOR [Suspect]
     Active Substance: EVEROLIMUS
     Dosage: 5 MG
     Route: 048
     Dates: start: 20220121
  4. AROMASIN [Concomitant]
     Active Substance: EXEMESTANE
     Indication: Product used for unknown indication
     Dosage: 25 MG
     Route: 065
  5. ENALAPRIL MALEATE [Concomitant]
     Active Substance: ENALAPRIL MALEATE
     Indication: Product used for unknown indication
     Dosage: UNK 5 (UNITS NOT PROVIDED)
     Route: 065
  6. DERRUMAL [Concomitant]
     Indication: Product used for unknown indication
     Dosage: UNK 300 (UNITS NOT PROVIDED)
     Route: 065
  7. SUPRALER [Concomitant]
     Indication: Product used for unknown indication
     Dosage: UNK 5 (UNITS NOT PROVIDED)
     Route: 065
  8. ADIKAN [Concomitant]
     Indication: Product used for unknown indication
     Dosage: UNK 40 (UNITS NOT PROVIDED)
     Route: 065
  9. INDUZEPAM [Concomitant]
     Indication: Product used for unknown indication
     Dosage: UNK 0.5 (UNITS NOT PROVIDED)
     Route: 065
  10. LIPITOR [Concomitant]
     Active Substance: ATORVASTATIN CALCIUM
     Indication: Product used for unknown indication
     Dosage: 10 MG
     Route: 065

REACTIONS (4)
  - Diabetes mellitus [Unknown]
  - Blood glucose increased [Recovering/Resolving]
  - Stomatitis [Unknown]
  - Lung disorder [Unknown]

NARRATIVE: CASE EVENT DATE: 20220121
